FAERS Safety Report 14632447 (Version 2)
Quarter: 2018Q3

REPORT INFORMATION
  Report Type: Report from Study
  Country: BR (occurrence: BR)
  Receive Date: 20180313
  Receipt Date: 20180817
  Transmission Date: 20181010
  Serious: Yes (Hospitalization)
  Sender: FDA-Public Use
  Company Number: PHHY2017BR138404

PATIENT
  Age: 45 Year
  Sex: Female
  Weight: 92 kg

DRUGS (2)
  1. COSENTYX [Suspect]
     Active Substance: SECUKINUMAB
     Indication: PSORIATIC ARTHROPATHY
     Dosage: 300 MG (TWO PENS), QMO
     Route: 058
     Dates: start: 20170302
  2. COSENTYX [Suspect]
     Active Substance: SECUKINUMAB
     Indication: PSORIASIS
     Dosage: 300 MG (TWO PENS), QMO
     Route: 058
     Dates: start: 20170830

REACTIONS (12)
  - Feeling abnormal [Recovering/Resolving]
  - Weight increased [Recovering/Resolving]
  - Skin discolouration [Unknown]
  - Psoriasis [Not Recovered/Not Resolved]
  - Blister [Unknown]
  - Burning sensation [Unknown]
  - Rheumatic disorder [Unknown]
  - Depression [Recovering/Resolving]
  - Hypersensitivity [Not Recovered/Not Resolved]
  - Influenza [Not Recovered/Not Resolved]
  - Pruritus [Unknown]
  - Inappropriate schedule of drug administration [Unknown]

NARRATIVE: CASE EVENT DATE: 20170302
